FAERS Safety Report 14687990 (Version 1)
Quarter: 2018Q1

REPORT INFORMATION
  Report Type: Spontaneous
  Country: US (occurrence: US)
  Receive Date: 20180328
  Receipt Date: 20180328
  Transmission Date: 20180509
  Serious: No
  Sender: FDA-Public Use
  Company Number: US-PFIZER INC-2018122059

PATIENT
  Age: 59 Year
  Sex: Female
  Weight: 95.25 kg

DRUGS (2)
  1. PREMARIN [Suspect]
     Active Substance: ESTROGENS, CONJUGATED
     Indication: HYSTERECTOMY
     Dosage: 0.625 MG, DAILY (0.625MG TABLET BY MOUTH DAILY)
     Route: 048
  2. PREMARIN [Suspect]
     Active Substance: ESTROGENS, CONJUGATED
     Dosage: CUTTING BACK TO TAKING EVERY OTHER DAY, THEN STRETCHING IT TO ONLY TAKING PREMARIN 3-4 TIMES A WEEK
     Dates: start: 201802

REACTIONS (4)
  - Insomnia [Not Recovered/Not Resolved]
  - Product use issue [Not Recovered/Not Resolved]
  - Mood altered [Not Recovered/Not Resolved]
  - Night sweats [Not Recovered/Not Resolved]

NARRATIVE: CASE EVENT DATE: 201802
